FAERS Safety Report 9535432 (Version 3)
Quarter: 2014Q1

REPORT INFORMATION
  Report Type: Spontaneous
  Country: CA (occurrence: CA)
  Receive Date: 20130918
  Receipt Date: 20140224
  Transmission Date: 20141002
  Serious: Yes (Hospitalization)
  Sender: FDA-Public Use
  Company Number: CA-BAXTER-2013BAX034871

PATIENT
  Age: 87 Year
  Sex: Female

DRUGS (7)
  1. DIANEAL PD4 SOLUTION WITH 1.5% DEXTROSE AND 2.5 MEQ/L CALCIUM [Suspect]
     Indication: PERITONEAL DIALYSIS
     Route: 033
     Dates: start: 2013
  2. DIANEAL PD4 SOLUTION WITH 2.5% DEXTROSE AND 2.5 MEQ/L CALCIUM [Suspect]
     Indication: PERITONEAL DIALYSIS
     Route: 033
     Dates: start: 201305
  3. EXTRANEAL [Suspect]
     Indication: PERITONEAL DIALYSIS
     Route: 033
     Dates: start: 201305
  4. EXTRANEAL [Suspect]
     Route: 033
  5. TYLENOL [Suspect]
     Indication: PAIN
  6. EPREX [Suspect]
     Indication: HAEMOGLOBIN DECREASED
     Dates: start: 2014, end: 2014
  7. ARANESP [Suspect]
     Indication: HAEMOGLOBIN DECREASED
     Dates: start: 201308

REACTIONS (7)
  - Pneumonia [Not Recovered/Not Resolved]
  - Delirium [Not Recovered/Not Resolved]
  - Insomnia [Unknown]
  - Haemoglobin decreased [Unknown]
  - Pain in extremity [Unknown]
  - Arthralgia [Unknown]
  - Confusional state [Unknown]
